FAERS Safety Report 5382891-3 (Version None)
Quarter: 2007Q3

REPORT INFORMATION
  Report Type: 
  Country: None (occurrence: None)
  Receive Date: 20070710
  Receipt Date: 20070703
  Transmission Date: 20080115
  Serious: Yes (Congenital Anomaly, Other)
  Sender: FDA-Public Use
  Company Number: GB-PURDUE-DEU_2007_0003420

PATIENT
  Age: 6 Month

DRUGS (4)
  1. DIHYDROCODEINE BITARTATE [Suspect]
     Indication: DRUG EXPOSURE DURING PREGNANCY
     Route: 064
  2. DIAZEPAM [Suspect]
     Indication: DRUG EXPOSURE DURING PREGNANCY
     Route: 064
  3. AMPHETAMINE SULFATE [Suspect]
     Indication: DRUG EXPOSURE DURING PREGNANCY
     Route: 064
  4. METHADONE HCL [Suspect]
     Indication: DRUG EXPOSURE DURING PREGNANCY
     Route: 064

REACTIONS (4)
  - CONGENITAL NYSTAGMUS [None]
  - DEVELOPMENTAL DELAY [None]
  - HYPERMETROPIA [None]
  - VISION ABNORMAL NEONATAL [None]
